FAERS Safety Report 6847307-6 (Version None)
Quarter: 2010Q3

REPORT INFORMATION
  Report Type: 
  Country: None (occurrence: None)
  Receive Date: 20100713
  Receipt Date: 20100702
  Transmission Date: 20110219
  Serious: Yes (Life-Threatening)
  Sender: FDA-Public Use
  Company Number: PI-04846

PATIENT
  Age: 30 Year
  Sex: Female

DRUGS (2)
  1. CHLORAPREP ONE-STEP [Suspect]
     Indication: PREOPERATIVE CARE
     Dosage: 3ML, TWICE, TOPICAL
     Route: 061
     Dates: start: 20100430
  2. IV ANTIBIOTICS [Concomitant]

REACTIONS (3)
  - ALLERGY TEST POSITIVE [None]
  - ANAPHYLACTIC REACTION [None]
  - HYPERTENSION [None]
